FAERS Safety Report 8845381 (Version 2)
Quarter: 2013Q1

REPORT INFORMATION
  Report Type: Spontaneous
  Country: US (occurrence: None)
  Receive Date: 20121015
  Receipt Date: 20121105
  Transmission Date: 20140127
  Serious: Yes (Hospitalization, Other)
  Sender: FDA-Public Use
  Company Number: 2010US004520

PATIENT
  Age: 74 Year
  Sex: Female
  Weight: 69 kg

DRUGS (10)
  1. VESICARE [Suspect]
     Indication: URINARY INCONTINENCE
     Dosage: 10 MG, UID/QD, ORAL
     Route: 048
     Dates: start: 2007, end: 201208
  2. VESICARE [Suspect]
     Indication: POLLAKIURIA
     Dosage: 10 MG, UID/QD, ORAL
     Route: 048
     Dates: start: 2007, end: 201208
  3. VESICARE [Suspect]
     Indication: HYPERTONIC BLADDER
     Dosage: 10 MG, UID/QD, ORAL
     Route: 048
     Dates: start: 2007, end: 201208
  4. DRUGS FOR FUNCTIONAL GASTROINTEST. DISORDERS [Concomitant]
  5. RISPERDAL (RISPERIDONE) [Concomitant]
  6. XANAXX (ALPRAZOLAM) [Concomitant]
  7. ANTIHYPERTENSIVES [Concomitant]
  8. COUMADIN (WARFARIN SODIUM) [Concomitant]
  9. FISH OIL [Concomitant]
  10. ZANTAC (RANITIDINE) [Concomitant]

REACTIONS (15)
  - Adverse event [None]
  - Nocturia [None]
  - Urinary incontinence [None]
  - Urinary tract infection [None]
  - Cardiac disorder [None]
  - Drug ineffective [None]
  - Heart valve incompetence [None]
  - Respiratory disorder [None]
  - Cardiovascular insufficiency [None]
  - Bladder pain [None]
  - Eye pain [None]
  - Local swelling [None]
  - Dry eye [None]
  - Headache [None]
  - Lung disorder [None]
